FAERS Safety Report 8769726 (Version 2)
Quarter: 2013Q1

REPORT INFORMATION
  Report Type: Spontaneous
  Country: US (occurrence: US)
  Receive Date: 20120905
  Receipt Date: 20130110
  Transmission Date: 20140127
  Serious: No
  Sender: FDA-Public Use
  Company Number: US-009507513-1208USA011069

PATIENT
  Age: 23 Year
  Sex: Female
  Weight: 53.52 kg

DRUGS (2)
  1. NUVARING [Suspect]
     Indication: CONTRACEPTION
     Dosage: 1 DF, 1 RING FOR 3 WEEKS THEN A BREAK AND RESINSERT AFTER PERIOD STOPS
     Route: 067
     Dates: start: 201202
  2. LORATADINE [Concomitant]

REACTIONS (4)
  - Unintended pregnancy [Unknown]
  - Withdrawal bleed [Unknown]
  - Inappropriate schedule of drug administration [Unknown]
  - Inappropriate schedule of drug administration [Unknown]
